FAERS Safety Report 10922286 (Version 1)
Quarter: 2015Q1

REPORT INFORMATION
  Report Type: Spontaneous
  Country: ES (occurrence: None)
  Receive Date: 20150312
  Receipt Date: 20150312
  Transmission Date: 20150721
  Serious: Yes (Death, Hospitalization, Other)
  Sender: FDA-Public Use
  Company Number: 2269409

PATIENT
  Age: 62 Year
  Sex: Male

DRUGS (3)
  1. IRINOTECAN HYDROCHLORIDE. [Suspect]
     Active Substance: IRINOTECAN HYDROCHLORIDE
     Indication: COLON NEOPLASM
     Dosage: (1 DAY)
     Dates: start: 20031104, end: 20040520
  2. RALTITREXED DISODIUM [Suspect]
     Active Substance: RALTITREXED
     Indication: COLON NEOPLASM
     Dates: start: 20031104, end: 20040520
  3. OXALIPLATIN. [Suspect]
     Active Substance: OXALIPLATIN
     Indication: COLON NEOPLASM
     Dates: start: 20040912

REACTIONS (8)
  - Anaemia [None]
  - Disease progression [None]
  - Hepatic failure [None]
  - Neuropathy peripheral [None]
  - Asthenia [None]
  - Intestinal obstruction [None]
  - Diarrhoea [None]
  - Therapeutic response decreased [None]
